FAERS Safety Report 14650252 (Version 1)
Quarter: 2018Q1

REPORT INFORMATION
  Report Type: Spontaneous
  Country: JP (occurrence: JP)
  Receive Date: 20180316
  Receipt Date: 20180316
  Transmission Date: 20180509
  Serious: Yes (Death)
  Sender: FDA-Public Use
  Company Number: JP-BAYER-2018-030157

PATIENT
  Age: 78 Year
  Sex: Female
  Weight: 54 kg

DRUGS (8)
  1. BAYASPIRIN 100 MG [Suspect]
     Active Substance: ASPIRIN
     Route: 048
  2. XARELTO [Interacting]
     Active Substance: RIVAROXABAN
     Indication: ATRIAL FIBRILLATION
     Dosage: 15 MG, QD
     Route: 048
     Dates: start: 20130904, end: 20180201
  3. PRAVASTATIN. [Concomitant]
     Active Substance: PRAVASTATIN
  4. ETIZOLAM [Concomitant]
     Active Substance: ETIZOLAM
  5. LANSOPRAZOLE. [Concomitant]
     Active Substance: LANSOPRAZOLE
  6. PANTOSIN [Concomitant]
     Active Substance: PANTETHINE
  7. TEMOCAPRIL HYDROCHLORIDE [Concomitant]
     Active Substance: TEMOCAPRIL HYDROCHLORIDE
  8. AMLODIPINE [Concomitant]
     Active Substance: AMLODIPINE BESYLATE

REACTIONS (4)
  - Cerebral haemorrhage [Fatal]
  - Drug interaction [None]
  - Hemiplegia [Fatal]
  - Aphasia [Fatal]

NARRATIVE: CASE EVENT DATE: 20180201
